FAERS Safety Report 8598996-X (Version None)
Quarter: 2012Q3

REPORT INFORMATION
  Report Type: 
  Country: None (occurrence: None)
  Receive Date: 20120806
  Receipt Date: 20120806
  Transmission Date: 20120928
  Serious: Yes (Other)
  Sender: FDA-Public Use
  Company Number: None

PATIENT
  Sex: Female

DRUGS (2)
  1. VALACYCLOVIR HYDROCHLORIDE [Suspect]
     Indication: HERPES VIRUS INFECTION
     Dosage: 500 MG ONCE A DAY PO
     Route: 048
     Dates: start: 20120726, end: 20120727
  2. PRENATAL [Concomitant]

REACTIONS (4)
  - SUICIDAL IDEATION [None]
  - DEPRESSION [None]
  - FATIGUE [None]
  - HEADACHE [None]
